FAERS Safety Report 17723856 (Version 4)
Quarter: 2020Q3

REPORT INFORMATION
  Report Type: Spontaneous
  Country: US (occurrence: US)
  Receive Date: 20200429
  Receipt Date: 20200713
  Transmission Date: 20201102
  Serious: No
  Sender: FDA-Public Use
  Company Number: US-SA-2020SA110829

PATIENT

DRUGS (2)
  1. INSULIN ASPART [Concomitant]
     Active Substance: INSULIN ASPART
     Dosage: UNK
     Route: 065
  2. LANTUS [Suspect]
     Active Substance: INSULIN GLARGINE
     Indication: TYPE 2 DIABETES MELLITUS
     Dosage: 35 TO 40 UNITS, QD (NIGHTLY)
     Route: 065

REACTIONS (5)
  - Asthenia [Unknown]
  - Tremor [Unknown]
  - Blood glucose decreased [Unknown]
  - Hunger [Unknown]
  - Heart rate increased [Unknown]
